FAERS Safety Report 8688247 (Version 1)
Quarter: 2012Q4

REPORT INFORMATION
  Report Type: 
  Country: US (occurrence: US)
  Receive Date: 20120829
  Receipt Date: 20120829
  Transmission Date: 20130627
  Serious: Yes (Other)
  Sender: FDA-Public Use
  Company Number: US-ROCHE-1092918

PATIENT
  Sex: Female

DRUGS (2)
  1. XOLAIR [Suspect]
     Indication: ASTHMA
     Route: 065
     Dates: end: 200607
  2. XOLAIR [Suspect]
     Route: 065

REACTIONS (7)
  - Cough [Unknown]
  - Obstructive airways disorder [Unknown]
  - Wheezing [Unknown]
  - Fatigue [Unknown]
  - Chest pain [Unknown]
  - Sinus headache [Unknown]
  - Dyspnoea [Unknown]
